FAERS Safety Report 14760814 (Version 1)
Quarter: 2018Q2

REPORT INFORMATION
  Report Type: Report from Study
  Country: US (occurrence: US)
  Receive Date: 20180414
  Receipt Date: 20180414
  Transmission Date: 20180711
  Serious: Yes (Death, Hospitalization)
  Sender: FDA-Public Use
  Company Number: US-JNJFOC-20180407398

PATIENT
  Age: 54 Year
  Sex: Male

DRUGS (2)
  1. TYLENOL ARTHRITIS PAIN [Suspect]
     Active Substance: ACETAMINOPHEN
     Route: 048
  2. TYLENOL ARTHRITIS PAIN [Suspect]
     Active Substance: ACETAMINOPHEN
     Indication: SUICIDE ATTEMPT
     Dosage: APPROXIMATELY 25 HOURS PRIOR TO PRESENTATION IN AN??ATTEMPT TO HARM HIMSELF
     Route: 048

REACTIONS (12)
  - Hepatic enzyme increased [Fatal]
  - Haematemesis [Fatal]
  - Brain oedema [Fatal]
  - Tachycardia [Fatal]
  - Urine output decreased [Fatal]
  - Intentional overdose [Fatal]
  - Jaundice [Fatal]
  - Gastritis [Fatal]
  - Blood alkaline phosphatase increased [Fatal]
  - Coagulation factor increased [Fatal]
  - Ammonia increased [Fatal]
  - Somnolence [Fatal]
